FAERS Safety Report 16736918 (Version 2)
Quarter: 2019Q3

REPORT INFORMATION
  Report Type: Report from Study
  Country: CO (occurrence: CO)
  Receive Date: 20190823
  Receipt Date: 20190906
  Transmission Date: 20191005
  Serious: Yes (Hospitalization)
  Sender: FDA-Public Use
  Company Number: CO-ASTELLAS-2019US033907

PATIENT
  Age: 62 Year
  Sex: Male

DRUGS (5)
  1. ENZALUTAMIDE [Suspect]
     Active Substance: ENZALUTAMIDE
     Indication: HORMONE-REFRACTORY PROSTATE CANCER
     Route: 048
     Dates: start: 20190502
  2. HYOSCINE [Concomitant]
     Active Substance: SCOPOLAMINE
     Indication: PAIN
     Route: 065
  3. BISACODYL. [Concomitant]
     Active Substance: BISACODYL
     Indication: PRODUCT USED FOR UNKNOWN INDICATION
     Dosage: 6.5 MG,(TWO TABLETS AT NIGHT AND ONE TABLET AT MORNING)
     Route: 065
  4. ESOMEPRAZOLE. [Concomitant]
     Active Substance: ESOMEPRAZOLE MAGNESIUM
     Indication: PRODUCT USED FOR UNKNOWN INDICATION
     Dosage: 40 MG, UNKNOWN FREQ. (ON AN EMPTY STOMACH)
     Route: 065
  5. CARBAMAZEPINE. [Concomitant]
     Active Substance: CARBAMAZEPINE
     Indication: PRODUCT USED FOR UNKNOWN INDICATION
     Dosage: 200 MG, EVERY 12 HOURS FOR 1 MONTH
     Route: 065

REACTIONS (7)
  - Product dose omission [Unknown]
  - Pyrexia [Not Recovered/Not Resolved]
  - Tremor [Recovered/Resolved]
  - Product availability issue [Unknown]
  - Chest pain [Not Recovered/Not Resolved]
  - Decubitus ulcer [Recovering/Resolving]
  - Haemoglobin decreased [Unknown]

NARRATIVE: CASE EVENT DATE: 201908
